FAERS Safety Report 12689503 (Version 1)
Quarter: 2016Q3

REPORT INFORMATION
  Report Type: Spontaneous
  Country: US (occurrence: None)
  Receive Date: 20160825
  Receipt Date: 20160825
  Transmission Date: 20161109
  Serious: No
  Sender: FDA-Public Use
  Company Number: None

PATIENT
  Sex: Female
  Weight: 58.97 kg

DRUGS (2)
  1. CARBIDOPA/LEVODOPA, 12.5/50MG [Suspect]
     Active Substance: CARBIDOPA\LEVODOPA
     Indication: BACK PAIN
     Route: 048
     Dates: start: 20160621, end: 20160723
  2. NAPROXEN, 250MG [Suspect]
     Active Substance: NAPROXEN
     Indication: BACK PAIN
     Route: 048
     Dates: start: 20160620, end: 20160723

REACTIONS (2)
  - Maternal exposure before pregnancy [None]
  - Pregnancy [None]
